FAERS Safety Report 26141861 (Version 1)
Quarter: 2025Q4

REPORT INFORMATION
  Report Type: Spontaneous
  Country: EU (occurrence: EU)
  Receive Date: 20251210
  Receipt Date: 20251210
  Transmission Date: 20260118
  Serious: Yes (Hospitalization)
  Sender: NOVARTIS
  Company Number: None

PATIENT
  Age: 78 Year
  Sex: Male
  Weight: 71 kg

DRUGS (3)
  1. CERTICAN [Interacting]
     Active Substance: EVEROLIMUS
     Indication: Solid organ transplant
     Dosage: 1.25 MG, Q12H
     Route: 048
     Dates: start: 202307
  2. MYFORTIC [Interacting]
     Active Substance: MYCOPHENOLATE SODIUM
     Indication: Solid organ transplant
     Dosage: 180 MG, Q12H
     Route: 048
     Dates: start: 202307
  3. PREDNISONE [Interacting]
     Active Substance: PREDNISONE
     Indication: Solid organ transplant
     Dosage: 5 MG, Q24H
     Route: 048
     Dates: start: 202307

REACTIONS (1)
  - Pyelonephritis acute [Recovered/Resolved]

NARRATIVE: CASE EVENT DATE: 20250710
